FAERS Safety Report 4822221-6 (Version None)
Quarter: 2005Q4

REPORT INFORMATION
  Report Type: 
  Country: None (occurrence: None)
  Receive Date: 20051103
  Receipt Date: 20051018
  Transmission Date: 20060501
  Serious: Yes (Hospitalization)
  Sender: FDA-Public Use
  Company Number: USA0510111286

PATIENT
  Age: 77 Year
  Sex: Female

DRUGS (7)
  1. ZYPREXA [Suspect]
     Indication: BIPOLAR DISORDER
     Dosage: 15 MG DAY
     Dates: start: 20030101, end: 20051015
  2. FLUOXETINE [Concomitant]
  3. LISINOPRIL [Concomitant]
  4. METHIMAZOLE [Concomitant]
  5. DYAZIDE [Concomitant]
  6. FOSAMAX [Concomitant]
  7. OXYTROL [Concomitant]

REACTIONS (5)
  - AMNESIA [None]
  - BALANCE DISORDER [None]
  - GAIT DISTURBANCE [None]
  - READING DISORDER [None]
  - TARDIVE DYSKINESIA [None]
